FAERS Safety Report 9264823 (Version 1)
Quarter: 2013Q2

REPORT INFORMATION
  Report Type: Spontaneous
  Country: DE (occurrence: None)
  Receive Date: 20130429
  Receipt Date: 20130429
  Transmission Date: 20140414
  Serious: Yes (Hospitalization)
  Sender: FDA-Public Use
  Company Number: GER/GER/13/0029202

PATIENT
  Age: 64 Year
  Sex: Female

DRUGS (6)
  1. CITALOPRAM [Suspect]
     Indication: PRODUCT USED FOR UNKNOWN INDICATION
     Route: 048
     Dates: start: 20120206, end: 20130110
  2. SEROQUEL [Suspect]
     Indication: PRODUCT USED FOR UNKNOWN INDICATION
     Route: 048
     Dates: start: 20120714, end: 20120715
  3. ELONTRIL (B UPROPION HYDROCHLORIDE) [Concomitant]
  4. DOMINAL (ACETYLSALICYLIC ACID) [Concomitant]
  5. PANTOZOL (PANTOPRAZOLE SODIUM SESQUIHYDRATE) [Concomitant]
  6. LAMOTRIGINE (LAMOTRIGINE) [Concomitant]

REACTIONS (1)
  - Restless legs syndrome [None]
